FAERS Safety Report 15741541 (Version 2)
Quarter: 2019Q2

REPORT INFORMATION
  Report Type: Spontaneous
  Country: US (occurrence: US)
  Receive Date: 20181219
  Receipt Date: 20190531
  Transmission Date: 20190711
  Serious: Yes (Other)
  Sender: FDA-Public Use
  Company Number: US-SA-2018SA343659

PATIENT
  Sex: Female
  Weight: 64.4 kg

DRUGS (12)
  1. TAXOL [Concomitant]
     Active Substance: PACLITAXEL
  2. ABRAXANE [Concomitant]
     Active Substance: PACLITAXEL
  3. TAXOTERE [Suspect]
     Active Substance: DOCETAXEL
     Indication: BREAST CANCER FEMALE
     Dosage: 120 MG, Q3W
     Route: 042
     Dates: start: 20060511, end: 20060511
  4. MITOXANTRONE [Concomitant]
     Active Substance: MITOXANTRONE HYDROCHLORIDE
  5. EMLA [LIDOCAINE;PRILOCAINE] [Concomitant]
  6. ZOFRAN [Concomitant]
     Active Substance: ONDANSETRON HYDROCHLORIDE
  7. TAXOTERE [Suspect]
     Active Substance: DOCETAXEL
     Dosage: 120 MG, Q3W
     Dates: start: 20060713, end: 20060713
  8. NEULASTA [Concomitant]
     Active Substance: PEGFILGRASTIM
  9. COUMADIN [Concomitant]
     Active Substance: WARFARIN SODIUM
  10. DECADRON [Concomitant]
     Active Substance: DEXAMETHASONE
  11. PACLITAXEL. [Concomitant]
     Active Substance: PACLITAXEL
  12. PARAPLATIN [Concomitant]
     Active Substance: CARBOPLATIN

REACTIONS (1)
  - Alopecia [Not Recovered/Not Resolved]

NARRATIVE: CASE EVENT DATE: 20060517
